FAERS Safety Report 11523183 (Version 3)
Quarter: 2015Q4

REPORT INFORMATION
  Report Type: Report from Study
  Country: US (occurrence: US)
  Receive Date: 20150918
  Receipt Date: 20151228
  Transmission Date: 20160304
  Serious: Yes (Other)
  Sender: FDA-Public Use
  Company Number: US-BAYER-2015-419243

PATIENT
  Age: 14 Year
  Sex: Male

DRUGS (6)
  1. DAUNORUBICIN [Concomitant]
     Active Substance: DAUNORUBICIN
  2. CYTARABINE. [Concomitant]
     Active Substance: CYTARABINE
  3. ETOPOSIDE. [Concomitant]
     Active Substance: ETOPOSIDE
  4. CASPOFUNGIN [Concomitant]
     Active Substance: CASPOFUNGIN
  5. NEXAVAR [Suspect]
     Active Substance: SORAFENIB
     Indication: ACUTE MYELOID LEUKAEMIA
     Dosage: 350 MG, QD
     Route: 048
     Dates: start: 20150801, end: 20150829
  6. ACYCLOVIR [ACICLOVIR] [Concomitant]
     Active Substance: ACYCLOVIR

REACTIONS (8)
  - Infection [None]
  - Dysaesthesia [None]
  - Off label use [None]
  - Hypoaesthesia [Not Recovered/Not Resolved]
  - Malaise [None]
  - Hypoaesthesia [Recovered/Resolved]
  - Hypertension [None]
  - Pain in extremity [None]

NARRATIVE: CASE EVENT DATE: 20150821
